FAERS Safety Report 14354598 (Version 2)
Quarter: 2018Q1

REPORT INFORMATION
  Report Type: Spontaneous
  Country: TR (occurrence: TR)
  Receive Date: 20180105
  Receipt Date: 20180112
  Transmission Date: 20180509
  Serious: Yes (Other)
  Sender: FDA-Public Use
  Company Number: TR-ABBVIE-18P-161-2210563-00

PATIENT
  Age: 4 Year
  Sex: Female

DRUGS (1)
  1. DEPAKIN [Suspect]
     Active Substance: VALPROATE SODIUM
     Indication: EPILEPSY
     Dosage: 200 ML IN THE MORNINGS AND 250 ML IN THE EVENINGS
     Route: 065
     Dates: start: 2015

REACTIONS (5)
  - Unresponsive to stimuli [Recovering/Resolving]
  - Drug interaction [Unknown]
  - Dizziness [Recovering/Resolving]
  - Abnormal behaviour [Recovering/Resolving]
  - Fatigue [Recovering/Resolving]

NARRATIVE: CASE EVENT DATE: 201710
